FAERS Safety Report 5744281-0 (Version None)
Quarter: 2008Q2

REPORT INFORMATION
  Report Type: 
  Country: None (occurrence: None)
  Receive Date: 20080520
  Receipt Date: 20080515
  Transmission Date: 20081010
  Serious: Yes (Hospitalization)
  Sender: FDA-Public Use
  Company Number: JP-MERCK-0804USA03926

PATIENT
  Age: 69 Year
  Sex: Female

DRUGS (7)
  1. ZETIA [Suspect]
     Indication: HYPERCHOLESTEROLAEMIA
     Route: 048
     Dates: start: 20070705, end: 20070807
  2. ALLOPURINOL [Concomitant]
     Route: 048
     Dates: start: 20040402
  3. ASPIRIN [Concomitant]
     Route: 048
     Dates: start: 20040402
  4. ROSUVASTATIN CALCIUM [Concomitant]
     Route: 048
     Dates: start: 20040402
  5. REBAMIPIDE [Concomitant]
     Route: 048
     Dates: start: 20040402
  6. URSODIOL [Concomitant]
     Route: 048
     Dates: start: 20040402
  7. SENNA [Concomitant]
     Route: 048
     Dates: start: 20040402

REACTIONS (1)
  - INTESTINAL OBSTRUCTION [None]
